FAERS Safety Report 5258591-7 (Version None)
Quarter: 2007Q1

REPORT INFORMATION
  Report Type: 
  Country: None (occurrence: None)
  Receive Date: 20070308
  Receipt Date: 20070301
  Transmission Date: 20070707
  Serious: Yes (Other)
  Sender: FDA-Public Use
  Company Number: 2007UW04021

PATIENT
  Sex: Female

DRUGS (1)
  1. ARIMIDEX [Suspect]
     Route: 048

REACTIONS (6)
  - BLOOD PRESSURE INCREASED [None]
  - BREAST CANCER [None]
  - BREAST CYST DRAINAGE [None]
  - BREAST DISCOMFORT [None]
  - DRY MOUTH [None]
  - NEOPLASM MALIGNANT [None]
